FAERS Safety Report 5132978-5 (Version None)
Quarter: 2006Q4

REPORT INFORMATION
  Report Type: 
  Country: None (occurrence: None)
  Receive Date: 20061017
  Receipt Date: 20061004
  Transmission Date: 20070319
  Serious: Yes (Other)
  Sender: FDA-Public Use
  Company Number: GXKR2006DK06158

PATIENT
  Sex: Female

DRUGS (2)
  1. DICILLIN (NGX) (DICLOXACILLIN) 500MG [Suspect]
     Indication: INFECTION
     Dosage: 1000 MG, QID
  2. ZOCOR [Concomitant]

REACTIONS (6)
  - ARTHRALGIA [None]
  - FATIGUE [None]
  - MYALGIA [None]
  - PRURITUS [None]
  - RASH GENERALISED [None]
  - SKIN SWELLING [None]
